FAERS Safety Report 5799416-0 (Version None)
Quarter: 2008Q3

REPORT INFORMATION
  Report Type: 
  Country: None (occurrence: None)
  Receive Date: 20080703
  Receipt Date: 20080625
  Transmission Date: 20090109
  Serious: Yes (Other)
  Sender: FDA-Public Use
  Company Number: BR-PFIZER INC-2008054903

PATIENT
  Sex: Male
  Weight: 85 kg

DRUGS (3)
  1. CITALOR [Suspect]
     Indication: BLOOD CHOLESTEROL INCREASED
     Route: 048
  2. SELOZOK [Concomitant]
  3. AAS [Concomitant]

REACTIONS (1)
  - CATHETERISATION CARDIAC [None]
